FAERS Safety Report 10246330 (Version 1)
Quarter: 2014Q2

REPORT INFORMATION
  Report Type: Report from Study
  Country: GB (occurrence: GB)
  Receive Date: 20140619
  Receipt Date: 20140619
  Transmission Date: 20141212
  Serious: Yes (Death)
  Sender: FDA-Public Use
  Company Number: GB-CELGENEUS-167-50794-14061583

PATIENT
  Age: 65 Year
  Sex: Male
  Weight: 82.5 kg

DRUGS (9)
  1. VIDAZA [Suspect]
     Indication: ACUTE MYELOID LEUKAEMIA
     Route: 058
     Dates: start: 20140527, end: 20140604
  2. PREDNISOLONE [Concomitant]
     Indication: DIARRHOEA
     Route: 065
     Dates: start: 20140426, end: 20140531
  3. MAGNASPARTE [Concomitant]
     Indication: HYPOMAGNESAEMIA
     Route: 065
     Dates: start: 20140604, end: 20140605
  4. FUROSEMIDE [Concomitant]
     Indication: HYPOXIA
     Route: 065
     Dates: start: 20140530, end: 20140604
  5. OMEPRAZOLE [Concomitant]
     Indication: PROPHYLAXIS
     Route: 065
     Dates: start: 20140531, end: 20140605
  6. DIGOXIN [Concomitant]
     Indication: ATRIAL FIBRILLATION
     Route: 065
     Dates: start: 20140530, end: 20140530
  7. CASPOFUNGIN [Concomitant]
     Indication: PROPHYLAXIS
     Route: 065
     Dates: start: 20140527, end: 20140604
  8. ALLOPURINOL [Concomitant]
     Indication: PROPHYLAXIS
     Route: 065
     Dates: start: 20140527, end: 20140605
  9. VALACICLOVIR [Concomitant]
     Indication: INFECTION PROPHYLAXIS
     Route: 065
     Dates: start: 20140527, end: 20140605

REACTIONS (1)
  - Interstitial lung disease [Fatal]
